FAERS Safety Report 24378823 (Version 1)
Quarter: 2024Q3

REPORT INFORMATION
  Report Type: Spontaneous
  Country: US (occurrence: None)
  Receive Date: 20240929
  Receipt Date: 20240929
  Transmission Date: 20241017
  Serious: Yes (Death)
  Sender: Public
  Company Number: None

PATIENT
  Age: 47 Year
  Sex: Male

DRUGS (1)
  1. MONTELUKAST [Suspect]
     Active Substance: MONTELUKAST SODIUM
     Indication: Rhinitis
     Dosage: OTHER QUANTITY : 1 TABLET(S);?FREQUENCY : DAILY;?
     Route: 048

REACTIONS (6)
  - Headache [None]
  - Feeling abnormal [None]
  - Arthralgia [None]
  - Tremor [None]
  - Rash [None]
  - Completed suicide [None]

NARRATIVE: CASE EVENT DATE: 20240819
